FAERS Safety Report 12180193 (Version 1)
Quarter: 2016Q1

REPORT INFORMATION
  Report Type: Spontaneous
  Country: US (occurrence: None)
  Receive Date: 20160314
  Receipt Date: 20160314
  Transmission Date: 20160526
  Serious: No
  Sender: FDA-Public Use
  Company Number: None

PATIENT
  Age: 47 Year
  Sex: Male
  Weight: 86.18 kg

DRUGS (3)
  1. CVS MUCUS D [Suspect]
     Active Substance: GUAIFENESIN\PSEUDOEPHEDRINE HYDROCHLORIDE
     Indication: NASOPHARYNGITIS
     Dates: start: 20160309, end: 20160309
  2. VASCEPA [Concomitant]
     Active Substance: ICOSAPENT ETHYL
  3. ZETIA [Concomitant]
     Active Substance: EZETIMIBE

REACTIONS (2)
  - Cough [None]
  - Insomnia [None]

NARRATIVE: CASE EVENT DATE: 20160309
